FAERS Safety Report 8054036-2 (Version None)
Quarter: 2011Q4

REPORT INFORMATION
  Report Type: 
  Country: None (occurrence: None)
  Receive Date: 20111213
  Receipt Date: 20110818
  Transmission Date: 20120403
  Serious: No
  Sender: FDA-Public Use
  Company Number: 2011SP039216

PATIENT
  Age: 57 Year
  Sex: Female

DRUGS (7)
  1. LEVOTHYROXINE SODIUM [Concomitant]
  2. VIIBRYD [Concomitant]
  3. PANTOPRAZOLE [Concomitant]
  4. SAPHRIS [Suspect]
     Indication: BIPOLAR DISORDER
     Dosage: 30 MG;HS;SL
     Route: 060
  5. FENOFIBRATE [Concomitant]
  6. CLONAZEPAM [Concomitant]
  7. PHENYTOIN [Concomitant]

REACTIONS (3)
  - INAPPROPRIATE SCHEDULE OF DRUG ADMINISTRATION [None]
  - NOCTURNAL DYSPNOEA [None]
  - OVERDOSE [None]
